FAERS Safety Report 7754483-X (Version None)
Quarter: 2011Q3

REPORT INFORMATION
  Report Type: 
  Country: None (occurrence: None)
  Receive Date: 20110915
  Receipt Date: 20110906
  Transmission Date: 20111222
  Serious: Yes (Life-Threatening, Hospitalization)
  Sender: FDA-Public Use
  Company Number: US-US-EMD SERONO, INC.-7081642

PATIENT
  Sex: Female

DRUGS (1)
  1. REBIF [Suspect]
     Indication: MULTIPLE SCLEROSIS
     Route: 058
     Dates: start: 20030905

REACTIONS (7)
  - HIP FRACTURE [None]
  - THROMBOSIS [None]
  - FALL [None]
  - PNEUMONIA [None]
  - HAEMATOMA [None]
  - PULMONARY EMBOLISM [None]
  - INFECTION [None]
